FAERS Safety Report 22522259 (Version 1)
Quarter: 2023Q2

REPORT INFORMATION
  Report Type: Spontaneous
  Country: KR (occurrence: KR)
  Receive Date: 20230605
  Receipt Date: 20230605
  Transmission Date: 20230721
  Serious: Yes (Hospitalization)
  Sender: FDA-Public Use
  Company Number: KR-ORGANON-O2305KOR003140

PATIENT
  Age: 73 Year
  Sex: Female
  Weight: 54 kg

DRUGS (7)
  1. COZAAR [Suspect]
     Active Substance: LOSARTAN POTASSIUM
     Indication: Cardiac failure congestive
     Dosage: 25 MILLIGRAM, QD
     Route: 048
     Dates: start: 20180531, end: 20201216
  2. APIXABAN [Suspect]
     Active Substance: APIXABAN
     Indication: Atrial fibrillation
     Dosage: 2.5 MILLIGRAM, 0.5 DAY
     Route: 048
     Dates: start: 20200910
  3. APIXABAN [Suspect]
     Active Substance: APIXABAN
     Indication: Atrial flutter
  4. SPIRONOLACTONE [Concomitant]
     Active Substance: SPIRONOLACTONE
     Indication: Cardiac failure congestive
     Dosage: 12.5 MILLIGRAM, QD
     Route: 048
     Dates: start: 20180508
  5. FUROSEMIDE [Concomitant]
     Active Substance: FUROSEMIDE
     Indication: Cardiac failure congestive
     Dosage: 20 MILLIGRAM, QD
     Route: 048
     Dates: start: 20180508
  6. CARVEDILOL [Concomitant]
     Active Substance: CARVEDILOL
     Indication: Atrial fibrillation
     Dosage: 3.125 MILLIGRAM, QD
     Route: 048
     Dates: start: 20180508
  7. CARVEDILOL [Concomitant]
     Active Substance: CARVEDILOL
     Indication: Atrial flutter

REACTIONS (1)
  - Cardiac failure [Recovered/Resolved]

NARRATIVE: CASE EVENT DATE: 20201220
